FAERS Safety Report 8033413-X (Version None)
Quarter: 2012Q1

REPORT INFORMATION
  Report Type: 
  Country: None (occurrence: None)
  Receive Date: 20120110
  Receipt Date: 20120109
  Transmission Date: 20120608
  Serious: Yes (Hospitalization, Other)
  Sender: FDA-Public Use
  Company Number: PHHY2011DE109825

PATIENT
  Sex: Male
  Weight: 93 kg

DRUGS (13)
  1. RASILEZ [Suspect]
     Indication: HYPERTENSION
     Dosage: 1 DF (300 MG), QD
     Route: 048
     Dates: start: 20101124, end: 20110525
  2. PLATELET AGGREGATION INHIBITORS [Concomitant]
     Dates: start: 20110415
  3. DICLAC 50 [Concomitant]
     Dosage: 150 MG, DAILY
     Route: 048
     Dates: end: 20110525
  4. BETA BLOCKING AGENTS [Concomitant]
     Dates: start: 20110415
  5. ORAL ANTIDIABETICS [Concomitant]
     Indication: DIABETES MELLITUS
  6. EXFORGE HCT [Suspect]
     Dosage: UNK
  7. ACE INHIBITORS [Concomitant]
     Dates: end: 20110415
  8. CENTRALLY ACTING SYMPATHOMIMETICS [Concomitant]
     Dates: start: 20110415
  9. PIOGLITAZONE HYDROCHLORIDE/METFORMIN HYDROCHLORIDE [Concomitant]
     Indication: DIABETES MELLITUS
     Dosage: 30/1700 MG / DAY
     Route: 048
     Dates: start: 20100607, end: 20110525
  10. STATINS [Concomitant]
     Dates: start: 20110415
  11. NOVONORM 0.5 [Concomitant]
     Indication: DIABETES MELLITUS
     Dosage: 1.5 MG, DAILY
     Route: 048
     Dates: start: 20100902, end: 20110525
  12. ENALAPRIL MALEATE [Concomitant]
     Indication: HYPERTENSION
     Dosage: 40 MG, DAILY
     Route: 048
     Dates: end: 20110525
  13. EXFORGE HCT [Suspect]
     Dosage: 1 DF, QD
     Route: 048
     Dates: start: 20110415, end: 20110424

REACTIONS (7)
  - HYPERTENSION [None]
  - ALBUMIN URINE PRESENT [None]
  - LEFT VENTRICULAR DYSFUNCTION [None]
  - MYOCARDIAL ISCHAEMIA [None]
  - CREATINE URINE INCREASED [None]
  - AORTIC VALVE STENOSIS [None]
  - CARDIAC VALVE RUPTURE [None]
